FAERS Safety Report 21949713 (Version 1)
Quarter: 2023Q1

REPORT INFORMATION
  Report Type: Spontaneous
  Country: US (occurrence: US)
  Receive Date: 20230203
  Receipt Date: 20230203
  Transmission Date: 20230418
  Serious: Yes (Death, Hospitalization, Other)
  Sender: FDA-Public Use
  Company Number: US-PFIZER INC-202300044411

PATIENT
  Age: 2 Year
  Sex: Male

DRUGS (2)
  1. NIFEDIPINE [Suspect]
     Active Substance: NIFEDIPINE
     Dosage: UNK (INGESTION)
     Route: 048
  2. LABETALOL HYDROCHLORIDE [Suspect]
     Active Substance: LABETALOL HYDROCHLORIDE
     Dosage: UNK (INGESTION)
     Route: 048

REACTIONS (5)
  - Accidental exposure to product [Fatal]
  - Death [Fatal]
  - Cardiac arrest [Fatal]
  - Respiratory arrest [Fatal]
  - Toxicity to various agents [Fatal]

NARRATIVE: CASE EVENT DATE: 20210101
